FAERS Safety Report 6704952-6 (Version None)
Quarter: 2010Q2

REPORT INFORMATION
  Report Type: 
  Country: None (occurrence: None)
  Receive Date: 20100430
  Receipt Date: 20100203
  Transmission Date: 20101027
  Serious: No
  Sender: FDA-Public Use
  Company Number: US-ASTRAZENECA-2010SE04927

PATIENT
  Age: 30035 Day
  Sex: Male
  Weight: 53.5 kg

DRUGS (2)
  1. NEXIUM [Suspect]
     Indication: DYSPEPSIA
     Route: 048
     Dates: start: 20100127
  2. M.V.I. [Concomitant]

REACTIONS (5)
  - ARTHRITIS [None]
  - CONSTIPATION [None]
  - DIZZINESS [None]
  - DRY MOUTH [None]
  - LETHARGY [None]
